FAERS Safety Report 4295085-X (Version None)
Quarter: 2004Q1

REPORT INFORMATION
  Report Type: 
  Country: None (occurrence: None)
  Receive Date: 20040216
  Receipt Date: 20040211
  Transmission Date: 20041129
  Serious: Yes (Life-Threatening, Hospitalization)
  Sender: FDA-Public Use
  Company Number: CA-GLAXOSMITHKLINE-A0498039A

PATIENT
  Age: 42 Year
  Sex: Female

DRUGS (2)
  1. PAXIL [Suspect]
     Indication: POST-TRAUMATIC STRESS DISORDER
     Dosage: 10MG SEE DOSAGE TEXT
     Dates: start: 20030101, end: 20030101
  2. SLEEPING PILL [Concomitant]
     Indication: ILL-DEFINED DISORDER
     Route: 048

REACTIONS (3)
  - DEREALISATION [None]
  - SELF MUTILATION [None]
  - SUICIDE ATTEMPT [None]
